FAERS Safety Report 25865698 (Version 1)
Quarter: 2025Q3

REPORT INFORMATION
  Report Type: Spontaneous
  Country: US (occurrence: US)
  Receive Date: 20250930
  Receipt Date: 20250930
  Transmission Date: 20251020
  Serious: No
  Sender: HERON
  Company Number: US-HERON THERAPEUTICS, INC-HRTX-2025-001087

PATIENT
  Sex: Female
  Weight: 49.887 kg

DRUGS (8)
  1. ZYNRELEF [Suspect]
     Active Substance: BUPIVACAINE\MELOXICAM
     Indication: Postoperative analgesia
     Route: 065
     Dates: start: 20250205, end: 20250205
  2. ZYNRELEF [Suspect]
     Active Substance: BUPIVACAINE\MELOXICAM
     Indication: Knee arthroplasty
  3. EXPAREL [Suspect]
     Active Substance: BUPIVACAINE
     Indication: Knee arthroplasty
     Route: 065
     Dates: start: 20250205, end: 20250205
  4. ZOLOFT [Concomitant]
     Active Substance: SERTRALINE HYDROCHLORIDE
     Indication: Anxiety
     Dosage: 100 MILLIGRAM, QD
     Route: 048
  5. TRAZODONE [Concomitant]
     Active Substance: TRAZODONE HYDROCHLORIDE
     Indication: Sleep disorder
     Dosage: 25 MILLIGRAM, QD
     Route: 048
  6. LEVOTHYROXINE [Concomitant]
     Active Substance: LEVOTHYROXINE
     Indication: Thyroid disorder
     Dosage: 100 MICROGRAM, QD
     Route: 048
  7. FINASTERIDE [Concomitant]
     Active Substance: FINASTERIDE
     Indication: Alopecia
     Dosage: 2.5 MILLIGRAM, QD
     Route: 048
  8. MINOXIDIL [Concomitant]
     Active Substance: MINOXIDIL
     Indication: Alopecia
     Dosage: 0.25 MILLIGRAM, QD
     Route: 048

REACTIONS (6)
  - Bradycardia [Unknown]
  - Brain fog [Unknown]
  - Aphasia [Unknown]
  - Feeling abnormal [Unknown]
  - Nervousness [Unknown]
  - Overdose [Unknown]

NARRATIVE: CASE EVENT DATE: 20250101
